FAERS Safety Report 11847110 (Version 1)
Quarter: 2015Q4

REPORT INFORMATION
  Report Type: Spontaneous
  Country: US (occurrence: US)
  Receive Date: 20151217
  Receipt Date: 20151217
  Transmission Date: 20160305
  Serious: No
  Sender: FDA-Public Use
  Company Number: US-BAYER-2015-487471

PATIENT
  Age: 4 Year
  Sex: Female
  Weight: 20.41 kg

DRUGS (1)
  1. CHILDREN CLARITIN ALLERGY [Suspect]
     Active Substance: LORATADINE
     Dosage: 2 DF, ONCE
     Route: 048
     Dates: start: 20151209, end: 20151209

REACTIONS (3)
  - Off label use [None]
  - Incorrect dose administered [None]
  - Product use issue [None]

NARRATIVE: CASE EVENT DATE: 20151209
